FAERS Safety Report 9843425 (Version 1)
Quarter: 2013Q4

REPORT INFORMATION
  Report Type: Spontaneous
  Country: US (occurrence: None)
  Receive Date: 20131223
  Receipt Date: 20131223
  Transmission Date: 20140711
  Serious: Yes (Other)
  Sender: FDA-Public Use
  Company Number: 222427LEO

PATIENT
  Age: 84 Year
  Sex: Female

DRUGS (1)
  1. PICATO [Suspect]
     Indication: ACTINIC KERATOSIS
     Dosage: 1 IN 1 D ON HANDS
     Dates: start: 20130618, end: 20130620

REACTIONS (3)
  - Application site erythema [None]
  - Application site vesicles [None]
  - Incorrect drug administration duration [None]
